FAERS Safety Report 5423968-3 (Version None)
Quarter: 2007Q3

REPORT INFORMATION
  Report Type: 
  Country: None (occurrence: None)
  Receive Date: 20070727
  Receipt Date: 20060710
  Transmission Date: 20080115
  Serious: Yes (Hospitalization)
  Sender: FDA-Public Use
  Company Number: THYM-11003

PATIENT
  Age: 62 Year
  Sex: Male
  Weight: 98.9 kg

DRUGS (5)
  1. THYMOGLOBULIN [Suspect]
     Indication: PROPHYLAXIS AGAINST TRANSPLANT REJECTION
     Dosage: 0.5 MG/KG ONCE IV
     Route: 042
     Dates: start: 20060410, end: 20060410
  2. THYMOGLOBULIN [Suspect]
     Indication: PROPHYLAXIS AGAINST TRANSPLANT REJECTION
     Dosage: 2.5 MG/KG ONCE IV
     Route: 042
     Dates: start: 20060411, end: 20060411
  3. THYMOGLOBULIN [Suspect]
     Indication: PROPHYLAXIS AGAINST TRANSPLANT REJECTION
     Dosage: 3 MG/KG ONCE IV
     Route: 042
     Dates: start: 20060412, end: 20060412
  4. VALGANCICLOVIR HCL [Concomitant]
  5. MYCOPHENOLATE MOFETIL [Concomitant]

REACTIONS (5)
  - DEHYDRATION [None]
  - DIZZINESS [None]
  - NEUTROPENIA [None]
  - SKIN LACERATION [None]
  - SUBDURAL EFFUSION [None]
